FAERS Safety Report 8522543-1 (Version None)
Quarter: 2012Q3

REPORT INFORMATION
  Report Type: 
  Country: None (occurrence: None)
  Receive Date: 20120719
  Receipt Date: 20120716
  Transmission Date: 20120928
  Serious: No
  Sender: FDA-Public Use
  Company Number: US-PFIZER INC-2012166946

PATIENT
  Sex: Female
  Weight: 57.596 kg

DRUGS (3)
  1. PREMARIN [Suspect]
     Indication: HOT FLUSH
     Dosage: 0.3 MG, DAILY
     Route: 048
     Dates: start: 20110701
  2. DIGOXIN [Concomitant]
     Indication: HEART RATE IRREGULAR
     Dosage: 0.25 MG, DAILY
  3. FOSAMAX [Concomitant]
     Indication: OSTEOPOROSIS
     Dosage: 70 MG, WEEKLY

REACTIONS (3)
  - HOT FLUSH [None]
  - BLOOD TRIGLYCERIDES INCREASED [None]
  - COUNTERFEIT DRUG ADMINISTERED [None]
